FAERS Safety Report 4506519-7 (Version None)
Quarter: 2004Q4

REPORT INFORMATION
  Report Type: 
  Country: None (occurrence: None)
  Receive Date: 20041122
  Receipt Date: 20041104
  Transmission Date: 20050328
  Serious: Yes (Life-Threatening)
  Sender: FDA-Public Use
  Company Number: PHHO2004CA15731

PATIENT
  Sex: Female

DRUGS (6)
  1. CLOZARIL [Suspect]
     Dosage: NOT REPORTED
     Route: 048
     Dates: start: 20011001, end: 20040915
  2. ATIVAN [Concomitant]
  3. HALDOL [Concomitant]
  4. OXYBUTYNIN [Concomitant]
  5. DOMPERIDONE [Concomitant]
  6. GEMFIBROZIL [Concomitant]

REACTIONS (3)
  - DYSTONIA [None]
  - NEUROLEPTIC MALIGNANT SYNDROME [None]
  - TACHYCARDIA [None]
